FAERS Safety Report 20099452 (Version 2)
Quarter: 2021Q4

REPORT INFORMATION
  Report Type: Other
  Country: US (occurrence: None)
  Receive Date: 20211122
  Receipt Date: 20211130
  Transmission Date: 20220303
  Serious: Yes (Other)
  Sender: FDA-Public Use
  Company Number: US-ROCHE-2957350

PATIENT
  Sex: Female

DRUGS (1)
  1. XELODA [Suspect]
     Active Substance: CAPECITABINE
     Indication: Colon cancer
     Dosage: TAKE 4 TABLET(S) BY MOUTH TWICE A DAY 14 DAYS ON, 7 DAYS OFF
     Route: 048

REACTIONS (3)
  - Intestinal obstruction [Unknown]
  - Fistula [Unknown]
  - Therapy interrupted [Unknown]
